FAERS Safety Report 15811078 (Version 1)
Quarter: 2019Q1

REPORT INFORMATION
  Report Type: Report from Study
  Country: TR (occurrence: TR)
  Receive Date: 20190111
  Receipt Date: 20190111
  Transmission Date: 20190417
  Serious: Yes (Other)
  Sender: FDA-Public Use
  Company Number: TR-SUN PHARMACEUTICAL INDUSTRIES LTD-2018RR-195806

PATIENT
  Age: 45 Year
  Sex: Female

DRUGS (5)
  1. LEVOTHYROXINE. [Suspect]
     Active Substance: LEVOTHYROXINE
     Indication: HYPOTHYROIDISM
     Dosage: 50 MICROGRAM, DAILY, ON WEEKS 0-20
     Route: 065
  2. PARACETAMOL [Suspect]
     Active Substance: ACETAMINOPHEN
     Indication: MIGRAINE
     Dosage: UNK
     Route: 065
  3. ERGOTAMINE [Suspect]
     Active Substance: CAFFEINE\ERGOTAMINE\ERGOTAMINE TARTRATE
     Indication: MIGRAINE
     Dosage: 0.75 MILLIGRAM, DAILY, IN WEEKS 0-5 AFTER LAST MENSTRUAL PERIOD
     Route: 048
  4. MECLOXAMINE CITRATE [Suspect]
     Active Substance: MECLOXAMINE CITRATE
     Indication: MIGRAINE
     Dosage: UNK
     Route: 048
  5. CAFFEINE. [Suspect]
     Active Substance: CAFFEINE
     Indication: MIGRAINE
     Dosage: UNK
     Route: 048

REACTIONS (2)
  - Exposure during pregnancy [Unknown]
  - Abortion spontaneous [Unknown]
